FAERS Safety Report 4592722-7 (Version None)
Quarter: 2005Q1

REPORT INFORMATION
  Report Type: 
  Country: None (occurrence: None)
  Receive Date: 20050218
  Receipt Date: 20050209
  Transmission Date: 20050727
  Serious: Yes (Other)
  Sender: FDA-Public Use
  Company Number: 2005-02-0689

PATIENT
  Age: 52 Year
  Sex: Male

DRUGS (1)
  1. CELESTAMINE TAB [Suspect]
     Indication: ECZEMA
     Dosage: 2 TAB; ORAL
     Route: 048
     Dates: start: 19970101

REACTIONS (13)
  - ADRENAL CORTICAL INSUFFICIENCY [None]
  - BLOOD CHLORIDE DECREASED [None]
  - BLOOD PRESSURE DIASTOLIC INCREASED [None]
  - BODY TEMPERATURE INCREASED [None]
  - CONVULSION [None]
  - DEPRESSED LEVEL OF CONSCIOUSNESS [None]
  - FEELING ABNORMAL [None]
  - HEART RATE INCREASED [None]
  - HYPONATRAEMIA [None]
  - MALAISE [None]
  - MICTURITION DISORDER [None]
  - RHABDOMYOLYSIS [None]
  - VOMITING [None]
